FAERS Safety Report 24583107 (Version 1)
Quarter: 2024Q4

REPORT INFORMATION
  Report Type: Spontaneous
  Country: FR (occurrence: FR)
  Receive Date: 20241106
  Receipt Date: 20241106
  Transmission Date: 20250115
  Serious: Yes (Hospitalization, Other)
  Sender: AUROBINDO
  Company Number: FR-AFSSAPS-RS2024001044

PATIENT
  Age: 42 Year
  Sex: Male
  Weight: 78.4 kg

DRUGS (2)
  1. PREDNISONE [Suspect]
     Active Substance: PREDNISONE
     Indication: Neurosarcoidosis
     Dosage: UNK (CURRENTLY INCREASING DOSE 60 MG/DAY OFF-LABEL USE)
     Route: 048
     Dates: start: 202409
  2. INFLIXIMAB [Suspect]
     Active Substance: INFLIXIMAB
     Indication: Neurosarcoidosis
     Dosage: 5 MILLIGRAM/KILOGRAM
     Route: 042
     Dates: start: 20241001, end: 20241001

REACTIONS (1)
  - Listeriosis [Not Recovered/Not Resolved]

NARRATIVE: CASE EVENT DATE: 20241014
